FAERS Safety Report 12491829 (Version 4)
Quarter: 2016Q3

REPORT INFORMATION
  Report Type: Spontaneous
  Country: DE (occurrence: DE)
  Receive Date: 20160623
  Receipt Date: 20160722
  Transmission Date: 20161109
  Serious: Yes (Death, Hospitalization, Other)
  Sender: FDA-Public Use
  Company Number: DE-BRISTOL-MYERS SQUIBB COMPANY-BMS-2016-040797

PATIENT
  Age: 73 Year
  Sex: Female
  Weight: 65 kg

DRUGS (2)
  1. NIVOLUMAB [Suspect]
     Active Substance: NIVOLUMAB
     Indication: LUNG NEOPLASM MALIGNANT
     Dosage: 216 MG, UNK
     Route: 042
     Dates: start: 20160429
  2. NIVOLUMAB [Suspect]
     Active Substance: NIVOLUMAB
     Dosage: 216 MG, UNK
     Route: 042
     Dates: start: 20160513

REACTIONS (11)
  - Vocal cord paralysis [Unknown]
  - Oesophageal stenosis [Unknown]
  - Hypophysitis [Recovering/Resolving]
  - Dizziness [Recovering/Resolving]
  - Meningioma [Unknown]
  - Microangiopathy [Recovering/Resolving]
  - Pharyngeal oedema [Unknown]
  - Diplopia [Recovering/Resolving]
  - Oedema [Unknown]
  - Dysphagia [Unknown]
  - Death [Fatal]

NARRATIVE: CASE EVENT DATE: 20160513
